FAERS Safety Report 18053987 (Version 3)
Quarter: 2021Q1

REPORT INFORMATION
  Report Type: Spontaneous
  Country: US (occurrence: US)
  Receive Date: 20200722
  Receipt Date: 20210121
  Transmission Date: 20210419
  Serious: Yes (Hospitalization)
  Sender: FDA-Public Use
  Company Number: US-PFIZER INC-2020279128

PATIENT
  Age: 61 Year
  Sex: Female
  Weight: 83.91 kg

DRUGS (3)
  1. INLYTA [Suspect]
     Active Substance: AXITINIB
     Dosage: 5 MG, 2X/DAY
     Route: 048
  2. INLYTA [Suspect]
     Active Substance: AXITINIB
     Indication: RENAL CANCER
     Dosage: UNK, 2X/DAY
     Route: 048
  3. INLYTA [Suspect]
     Active Substance: AXITINIB
     Dosage: 5 MG, DAILY
     Route: 048

REACTIONS (5)
  - Ankle fracture [Unknown]
  - Renal failure [Unknown]
  - Blood pressure abnormal [Unknown]
  - Constipation [Recovered/Resolved]
  - Respiratory failure [Unknown]
